FAERS Safety Report 23243363 (Version 1)
Quarter: 2023Q4

REPORT INFORMATION
  Report Type: Spontaneous
  Country: CA (occurrence: CA)
  Receive Date: 20231130
  Receipt Date: 20231130
  Transmission Date: 20240110
  Serious: Yes (Hospitalization)
  Sender: FDA-Public Use
  Company Number: CA-STRIDES ARCOLAB LIMITED-2023SP017717

PATIENT
  Age: 46 Year
  Sex: Female

DRUGS (10)
  1. GABAPENTIN [Suspect]
     Active Substance: GABAPENTIN
     Indication: Multiple sclerosis
     Dosage: UNK, INITIAL DOSAGE NOT STATED
     Route: 065
  2. GABAPENTIN [Suspect]
     Active Substance: GABAPENTIN
     Dosage: 600 MILLIGRAM, TID
     Route: 065
  3. BACLOFEN [Suspect]
     Active Substance: BACLOFEN
     Indication: Multiple sclerosis
     Dosage: UNK, INITIAL DOSAGE NOT STATED
     Route: 065
  4. BACLOFEN [Suspect]
     Active Substance: BACLOFEN
     Dosage: 40 MILLIGRAM, TID
     Route: 065
  5. BACLOFEN [Suspect]
     Active Substance: BACLOFEN
     Dosage: UNK, DECREASED TO HALF DOSE
     Route: 065
  6. PROPRANOLOL [Suspect]
     Active Substance: PROPRANOLOL HYDROCHLORIDE
     Indication: Multiple sclerosis
     Dosage: 120 MILLIGRAM PER DAY
     Route: 065
  7. TIAGABINE [Suspect]
     Active Substance: TIAGABINE
     Indication: Multiple sclerosis
     Dosage: 16 MILLIGRAM PER DAY
     Route: 065
  8. INTERFERON BETA-1A [Concomitant]
     Active Substance: INTERFERON BETA-1A
     Indication: Multiple sclerosis
     Dosage: UNK
     Route: 065
  9. TERIFLUNOMIDE [Concomitant]
     Active Substance: TERIFLUNOMIDE
     Indication: Multiple sclerosis
     Dosage: UNK
     Route: 065
  10. DALFAMPRIDINE [Concomitant]
     Active Substance: DALFAMPRIDINE
     Indication: Multiple sclerosis
     Dosage: 20 MILLIGRAM PER DAY
     Route: 065

REACTIONS (3)
  - Encephalopathy [Recovered/Resolved]
  - Myoclonus [Recovered/Resolved]
  - Off label use [Unknown]
